FAERS Safety Report 5750039-9 (Version None)
Quarter: 2008Q2

REPORT INFORMATION
  Report Type: 
  Country: None (occurrence: None)
  Receive Date: 20080527
  Receipt Date: 20080520
  Transmission Date: 20081010
  Serious: Yes (Hospitalization)
  Sender: FDA-Public Use
  Company Number: US-BOEHRINGER INGELHEIM GMBH, GERMANY-2008-BP-07897BP

PATIENT
  Sex: Male

DRUGS (5)
  1. FLOMAX [Suspect]
     Route: 065
  2. PROVIGIL [Suspect]
     Indication: CIRCADIAN RHYTHM SLEEP DISORDER
     Route: 048
     Dates: start: 20070920, end: 20080313
  3. TOPROL-XL [Suspect]
     Route: 065
  4. LIPITOR [Suspect]
     Route: 065
  5. KLONOPIN [Suspect]
     Route: 048

REACTIONS (2)
  - DRUG INTERACTION [None]
  - EPISTAXIS [None]
